FAERS Safety Report 4719330-9 (Version None)
Quarter: 2005Q3

REPORT INFORMATION
  Report Type: 
  Country: None (occurrence: None)
  Receive Date: 20050719
  Receipt Date: 20050706
  Transmission Date: 20060218
  Serious: Yes (Life-Threatening, Hospitalization, Other)
  Sender: FDA-Public Use
  Company Number: NLWYE371226JAN05

PATIENT
  Age: 72 Year
  Sex: Male

DRUGS (8)
  1. EFFEXOR XR [Suspect]
     Dosage: 1 TIME 300 MG; ORAL
     Route: 048
     Dates: start: 20041110, end: 20041110
  2. PARNATE (TRANYLCYPROMINE SULFATE, , 0) [Suspect]
     Indication: DEPRESSION
     Dosage: 30 MG 2X PER 1 DAY; ORAL
     Route: 048
     Dates: start: 20040801
  3. ASCAL CARDIO (CARBASALATE CALCIUM) [Suspect]
  4. OXAZEPAM [Concomitant]
  5. OXAZEPAM [Concomitant]
  6. BECONASE (BECLOMETASONE DIPROPIONATE) [Concomitant]
  7. RISPERDAL [Concomitant]
  8. VITAMIN B (VITAMIN B) [Concomitant]

REACTIONS (6)
  - ACCIDENTAL EXPOSURE [None]
  - DRUG INTERACTION [None]
  - HYPERTENSION [None]
  - RESPIRATORY FAILURE [None]
  - SEROTONIN SYNDROME [None]
  - TACHYCARDIA [None]
